FAERS Safety Report 6998029-2 (Version None)
Quarter: 2010Q3

REPORT INFORMATION
  Report Type: 
  Country: None (occurrence: None)
  Receive Date: 20100920
  Receipt Date: 20070620
  Transmission Date: 20110219
  Serious: Yes (Other)
  Sender: FDA-Public Use
  Company Number: US-ASTRAZENECA-2006UW23708

PATIENT
  Age: 9247 Day
  Sex: Female
  Weight: 107.5 kg

DRUGS (16)
  1. SEROQUEL [Suspect]
     Indication: MENTAL DISORDER
     Dosage: 50-100 MG
     Route: 048
     Dates: start: 20000711
  2. SEROQUEL [Suspect]
     Dosage: 400 MG-500 MG
     Route: 048
     Dates: start: 20010219
  3. SEROQUEL [Suspect]
     Route: 048
     Dates: start: 20010305
  4. CLOZARIL [Concomitant]
  5. GEODON [Concomitant]
  6. HALDOL [Concomitant]
  7. ZYPREXA [Concomitant]
  8. PAXIL [Concomitant]
  9. LORAZEPAM [Concomitant]
     Dates: start: 19940101
  10. CELEXA [Concomitant]
     Route: 048
     Dates: start: 20021007
  11. LIPITOR [Concomitant]
     Route: 048
     Dates: start: 20021024
  12. MAXZIDE [Concomitant]
     Route: 048
     Dates: start: 20021024
  13. ORTHO TRI-CYCLEN [Concomitant]
     Route: 048
     Dates: start: 20021024
  14. MICRONASE [Concomitant]
     Route: 048
     Dates: start: 20021024
  15. DEPAKOTE [Concomitant]
     Route: 048
     Dates: start: 19980929
  16. RISPERDAL [Concomitant]
     Route: 048
     Dates: start: 19980929

REACTIONS (3)
  - DIABETES MELLITUS [None]
  - TARDIVE DYSKINESIA [None]
  - TYPE 2 DIABETES MELLITUS [None]
